FAERS Safety Report 10304941 (Version 1)
Quarter: 2014Q3

REPORT INFORMATION
  Report Type: Spontaneous
  Country: GB (occurrence: GB)
  Receive Date: 20140715
  Receipt Date: 20140715
  Transmission Date: 20150326
  Serious: Yes (Hospitalization, Other)
  Sender: FDA-Public Use
  Company Number: GB-PAR PHARMACEUTICAL, INC-2014SCPR009233

PATIENT

DRUGS (7)
  1. VENLAFAXINE HYDROCHLORIDE. [Suspect]
     Active Substance: VENLAFAXINE HYDROCHLORIDE
     Dosage: 150 MG, DAILY
     Route: 065
  2. MEMANTINE [Concomitant]
     Active Substance: MEMANTINE
     Indication: DEMENTIA OF THE ALZHEIMER^S TYPE, WITH DELUSIONS
     Dosage: 20 MG, DAILY
     Route: 065
  3. VENLAFAXINE HYDROCHLORIDE. [Suspect]
     Active Substance: VENLAFAXINE HYDROCHLORIDE
     Indication: DEPRESSION
     Dosage: 75 MG, DAILY
     Route: 065
  4. DONEPEZIL HYDROCHLORIDE. [Concomitant]
     Active Substance: DONEPEZIL HYDROCHLORIDE
     Indication: DEMENTIA OF THE ALZHEIMER^S TYPE, WITH DELUSIONS
     Dosage: 5 MG, DAILY
     Route: 065
  5. RISPERIDONE. [Suspect]
     Active Substance: RISPERIDONE
     Dosage: 1 MG, HS
     Route: 065
  6. RISPERIDONE. [Suspect]
     Active Substance: RISPERIDONE
     Dosage: 1.5 MG, DAILY
     Route: 065
  7. RISPERIDONE. [Suspect]
     Active Substance: RISPERIDONE
     Indication: DEMENTIA OF THE ALZHEIMER^S TYPE, WITH DELUSIONS
     Dosage: 0.5 MG, DAILY
     Route: 065

REACTIONS (5)
  - Delusion of replacement [Recovering/Resolving]
  - Drug interaction [Unknown]
  - Treatment failure [Unknown]
  - Depression [Recovering/Resolving]
  - Off label use [Unknown]
